FAERS Safety Report 16589965 (Version 1)
Quarter: 2019Q3

REPORT INFORMATION
  Report Type: Spontaneous
  Country: US (occurrence: US)
  Receive Date: 20190717
  Receipt Date: 20190717
  Transmission Date: 20191004
  Serious: Yes (Other)
  Sender: FDA-Public Use
  Company Number: None

PATIENT
  Age: 92 Year
  Sex: Male
  Weight: 84.37 kg

DRUGS (1)
  1. VOTRIENT [Suspect]
     Active Substance: PAZOPANIB HYDROCHLORIDE
     Indication: SOFT TISSUE SARCOMA
     Route: 048
     Dates: start: 20190619, end: 20190717

REACTIONS (7)
  - Myalgia [None]
  - Pharyngeal swelling [None]
  - Dysphagia [None]
  - Swollen tongue [None]
  - Stomatitis [None]
  - Asthenia [None]
  - Hypoaesthesia [None]

NARRATIVE: CASE EVENT DATE: 20190717
